FAERS Safety Report 9003322 (Version 1)
Quarter: 2013Q1

REPORT INFORMATION
  Report Type: Spontaneous
  Country: US (occurrence: US)
  Receive Date: 20130108
  Receipt Date: 20130108
  Transmission Date: 20140127
  Serious: No
  Sender: FDA-Public Use
  Company Number: US-ASTRAZENECA-2012SE32050

PATIENT
  Age: 47 Year
  Sex: Female

DRUGS (4)
  1. SEROQUEL [Suspect]
     Indication: ANXIETY
     Route: 048
  2. SEROQUEL [Suspect]
     Indication: MAJOR DEPRESSION
     Route: 048
  3. SEROQUEL [Suspect]
     Indication: ANXIETY
     Dosage: 300 MG ONE TABLET IN THE AFTERNOON
     Route: 048
  4. SEROQUEL [Suspect]
     Indication: MAJOR DEPRESSION
     Dosage: 300 MG ONE TABLET IN THE AFTERNOON
     Route: 048

REACTIONS (5)
  - Anxiety [Unknown]
  - Panic attack [Unknown]
  - Diarrhoea [Unknown]
  - Malaise [Unknown]
  - Drug dispensing error [Unknown]
